FAERS Safety Report 20222741 (Version 5)
Quarter: 2022Q4

REPORT INFORMATION
  Report Type: Spontaneous
  Country: US (occurrence: US)
  Receive Date: 20211223
  Receipt Date: 20221201
  Transmission Date: 20230113
  Serious: Yes (Hospitalization, Other)
  Sender: FDA-Public Use
  Company Number: US-PFIZER INC-202101767774

PATIENT
  Age: 83 Year
  Sex: Male
  Weight: 99.787 kg

DRUGS (20)
  1. VYNDAMAX [Suspect]
     Active Substance: TAFAMIDIS
     Indication: Cardiac amyloidosis
     Dosage: UNK
  2. VYNDAMAX [Suspect]
     Active Substance: TAFAMIDIS
     Dosage: UNK
  3. VYNDAMAX [Suspect]
     Active Substance: TAFAMIDIS
     Dosage: UNK
  4. VYNDAMAX [Suspect]
     Active Substance: TAFAMIDIS
     Dosage: UNK
  5. VYNDAMAX [Suspect]
     Active Substance: TAFAMIDIS
     Dosage: UNK
  6. VYNDAMAX [Suspect]
     Active Substance: TAFAMIDIS
     Dosage: UNK
  7. VYNDAMAX [Suspect]
     Active Substance: TAFAMIDIS
     Dosage: UNK
  8. VYNDAMAX [Suspect]
     Active Substance: TAFAMIDIS
     Dosage: UNK
  9. VYNDAMAX [Suspect]
     Active Substance: TAFAMIDIS
     Dosage: UNK
  10. VYNDAMAX [Suspect]
     Active Substance: TAFAMIDIS
     Dosage: UNK
  11. VYNDAMAX [Suspect]
     Active Substance: TAFAMIDIS
     Dosage: UNK
  12. VYNDAMAX [Suspect]
     Active Substance: TAFAMIDIS
     Dosage: 61 MG, 1X/DAY
     Dates: start: 20200629
  13. VYNDAMAX [Suspect]
     Active Substance: TAFAMIDIS
     Dosage: 20 MG, DAILY
  14. VYNDAMAX [Suspect]
     Active Substance: TAFAMIDIS
     Dosage: 61 MG, 1X/DAY (61MG WITH WATER ONCE A DAY)
  15. ACETAMINOPHEN [Concomitant]
     Active Substance: ACETAMINOPHEN
     Dosage: UNK, AS NEEDED
  16. ATORVASTATIN [Concomitant]
     Active Substance: ATORVASTATIN
     Dosage: 20 MG, 1X/DAY (20MG TAKEN ONCE DAILY )
  17. CEPHALEXIN [Concomitant]
     Active Substance: CEPHALEXIN
     Indication: Cardiac infection
     Dosage: 500 MG, 2X/DAY (500MG CAPSULE-1 CAPSULE TAKEN 2 TIMES DAILY)
  18. POTASSIUM CHLORIDE [Concomitant]
     Active Substance: POTASSIUM CHLORIDE
     Dosage: UNK, 1X/DAY (10 MEQ EXTENDED RELEASE TAKEN ONCE DAILY)
  19. RIVAROXABAN [Concomitant]
     Active Substance: RIVAROXABAN
     Indication: Coagulation time shortened
     Dosage: 20 MG, 1X/DAY (20MG TAKEN ONCE A DAY)
  20. TORSEMIDE [Concomitant]
     Active Substance: TORSEMIDE
     Dosage: 20 MG

REACTIONS (11)
  - Cerebral thrombosis [Recovered/Resolved]
  - Transient ischaemic attack [Recovered/Resolved]
  - Tension [Recovered/Resolved]
  - Product dose omission issue [Recovered/Resolved]
  - Dizziness [Recovered/Resolved]
  - Feeling abnormal [Recovered/Resolved]
  - Vision blurred [Recovered/Resolved]
  - Anxiety [Recovered/Resolved]
  - Frustration tolerance decreased [Unknown]
  - Discomfort [Unknown]
  - COVID-19 [Unknown]

NARRATIVE: CASE EVENT DATE: 20210601
